FAERS Safety Report 16961253 (Version 1)
Quarter: 2019Q4

REPORT INFORMATION
  Report Type: Spontaneous
  Country: US (occurrence: US)
  Receive Date: 20191024
  Receipt Date: 20191024
  Transmission Date: 20200122
  Serious: Yes (Disabling)
  Sender: FDA-Public Use
  Company Number: None

PATIENT
  Age: 25 Year
  Sex: Male
  Weight: 81 kg

DRUGS (9)
  1. LEMON BALM EXTRACT [Concomitant]
  2. WELLBUTRIN XL [Suspect]
     Active Substance: BUPROPION HYDROCHLORIDE
     Indication: MAJOR DEPRESSION
     Dates: start: 20190616, end: 20190720
  3. BUPROPION SR 100MG [Suspect]
     Active Substance: BUPROPION HYDROCHLORIDE
  4. WELLBUTRIN XL [Suspect]
     Active Substance: BUPROPION HYDROCHLORIDE
     Indication: GENERALISED ANXIETY DISORDER
     Dates: start: 20190616, end: 20190720
  5. ASHWAGANDHA [Concomitant]
     Active Substance: HERBALS
  6. L-THEANINE [Concomitant]
     Active Substance: DIETARY SUPPLEMENT
  7. WELLBUTRIN XL [Suspect]
     Active Substance: BUPROPION HYDROCHLORIDE
     Indication: SEASONAL AFFECTIVE DISORDER
     Dates: start: 20190616, end: 20190720
  8. RHODIOLA [Concomitant]
     Active Substance: HERBALS
  9. PASSION FLOWER EXTRACT [Concomitant]
     Active Substance: PASSIFLORA EDULIS FLOWER

REACTIONS (2)
  - Tinnitus [None]
  - Ear discomfort [None]

NARRATIVE: CASE EVENT DATE: 20190618
